FAERS Safety Report 4644065-0 (Version None)
Quarter: 2005Q2

REPORT INFORMATION
  Report Type: 
  Country: None (occurrence: None)
  Receive Date: 20050425
  Receipt Date: 20050413
  Transmission Date: 20051028
  Serious: Yes (Other)
  Sender: FDA-Public Use
  Company Number: US-ROCHE-401885

PATIENT
  Age: 15 Year
  Sex: Male
  Weight: 63.5 kg

DRUGS (2)
  1. ACCUTANE [Suspect]
     Indication: ACNE
     Route: 048
     Dates: start: 20041214, end: 20050412
  2. ACCUTANE [Suspect]
     Route: 048
     Dates: start: 20041114, end: 20041214

REACTIONS (3)
  - DEPRESSION [None]
  - EDUCATIONAL PROBLEM [None]
  - SUICIDAL IDEATION [None]
